FAERS Safety Report 11720919 (Version 1)
Quarter: 2015Q4

REPORT INFORMATION
  Report Type: Spontaneous
  Country: US (occurrence: US)
  Receive Date: 20151110
  Receipt Date: 20151110
  Transmission Date: 20160304
  Serious: No
  Sender: FDA-Public Use
  Company Number: US-SA-2015SA142050

PATIENT
  Age: 56 Year
  Sex: Male

DRUGS (4)
  1. PRALUENT [Suspect]
     Active Substance: ALIROCUMAB
     Indication: TYPE IIA HYPERLIPIDAEMIA
     Route: 065
     Dates: start: 20150821, end: 20150821
  2. PRALUENT [Suspect]
     Active Substance: ALIROCUMAB
     Indication: TYPE IIA HYPERLIPIDAEMIA
     Route: 065
     Dates: start: 20150807, end: 20150807
  3. PRALUENT [Suspect]
     Active Substance: ALIROCUMAB
     Indication: TYPE IIA HYPERLIPIDAEMIA
     Route: 065
     Dates: start: 20150904
  4. ALIROCUMAB PREFILLED PEN [Concomitant]
     Dates: start: 20150807

REACTIONS (3)
  - Pain in jaw [Not Recovered/Not Resolved]
  - Rhinorrhoea [Recovered/Resolved]
  - Sinusitis [Not Recovered/Not Resolved]
